FAERS Safety Report 25415065 (Version 1)
Quarter: 2025Q2

REPORT INFORMATION
  Report Type: Spontaneous
  Country: MA (occurrence: MA)
  Receive Date: 20250609
  Receipt Date: 20250609
  Transmission Date: 20250716
  Serious: Yes (Hospitalization)
  Sender: PRINSTON PHARMACEUTICAL
  Company Number: MA-PRINSTON PHARMACEUTICAL INC.-2025PRN00191

PATIENT
  Age: 14 Month

DRUGS (1)
  1. AMPHETAMINE SULFATE [Suspect]
     Active Substance: AMPHETAMINE SULFATE
     Route: 065

REACTIONS (9)
  - Mydriasis [Recovered/Resolved]
  - Hyperthermia [Recovered/Resolved]
  - Tachycardia [Recovered/Resolved]
  - Ventricular extrasystoles [Recovered/Resolved]
  - Tachypnoea [Recovered/Resolved]
  - Seizure [Recovered/Resolved]
  - Hypertension [Recovered/Resolved]
  - Accidental exposure to product by child [Unknown]
  - Toxicity to various agents [Unknown]
